FAERS Safety Report 14460565 (Version 1)
Quarter: 2018Q1

REPORT INFORMATION
  Report Type: Spontaneous
  Country: US (occurrence: US)
  Receive Date: 20180130
  Receipt Date: 20180130
  Transmission Date: 20180509
  Serious: Yes (Other)
  Sender: FDA-Public Use
  Company Number: None

PATIENT
  Age: 55 Year
  Sex: Female
  Weight: 69.75 kg

DRUGS (1)
  1. ZOLPIDEM [Suspect]
     Active Substance: ZOLPIDEM\ZOLPIDEM TARTRATE
     Indication: INSOMNIA
     Dosage: ?          QUANTITY:90 TABLET(S);?
     Route: 048
     Dates: start: 20171204, end: 20171204

REACTIONS (7)
  - Insurance issue [None]
  - Abnormal dreams [None]
  - Eye disorder [None]
  - Hallucination [None]
  - Insomnia [None]
  - Irritability [None]
  - Eye swelling [None]

NARRATIVE: CASE EVENT DATE: 20171205
